FAERS Safety Report 15346577 (Version 5)
Quarter: 2019Q2

REPORT INFORMATION
  Report Type: Spontaneous
  Country: US (occurrence: US)
  Receive Date: 20180904
  Receipt Date: 20190530
  Transmission Date: 20190711
  Serious: No
  Sender: FDA-Public Use
  Company Number: US-PFIZER INC-2018353752

PATIENT
  Age: 75 Year
  Sex: Female
  Weight: 66 kg

DRUGS (1)
  1. DESVENLAFAXINE SUCCINATE MONOHYDRATE [Suspect]
     Active Substance: DESVENLAFAXINE SUCCINATE
     Indication: ANTIDEPRESSANT THERAPY
     Dosage: UNK
     Dates: start: 2018, end: 2018

REACTIONS (1)
  - Drug ineffective [Unknown]
